FAERS Safety Report 18845034 (Version 2)
Quarter: 2021Q1

REPORT INFORMATION
  Report Type: Spontaneous
  Country: BE (occurrence: BE)
  Receive Date: 20210203
  Receipt Date: 20210311
  Transmission Date: 20210419
  Serious: Yes (Other)
  Sender: FDA-Public Use
  Company Number: BE-JNJFOC-20210201302

PATIENT
  Age: 63 Year
  Sex: Male

DRUGS (2)
  1. RIVAROXABAN [Suspect]
     Active Substance: RIVAROXABAN
     Indication: PRODUCT USED FOR UNKNOWN INDICATION
     Dosage: 2.5 MG, BID
     Route: 048
  2. ASPRIN [Concomitant]
     Active Substance: ASPIRIN

REACTIONS (6)
  - Cardiomyopathy [Unknown]
  - Coronary artery thrombosis [Unknown]
  - Intracardiac thrombus [Unknown]
  - Arthralgia [Unknown]
  - Vascular stent stenosis [Unknown]
  - Inflammation [Unknown]
